FAERS Safety Report 21201363 (Version 1)
Quarter: 2022Q3

REPORT INFORMATION
  Report Type: Spontaneous
  Country: US (occurrence: US)
  Receive Date: 20220811
  Receipt Date: 20220811
  Transmission Date: 20221027
  Serious: Yes (Other)
  Sender: FDA-Public Use
  Company Number: US-MYLANLABS-2022M1084720

PATIENT
  Age: 60 Year
  Sex: Female

DRUGS (10)
  1. PACLITAXEL [Suspect]
     Active Substance: PACLITAXEL
     Indication: Ovarian cancer stage III
     Dosage: 150 MILLIGRAM/SQ. METER
     Route: 065
  2. CARBOPLATIN [Suspect]
     Active Substance: CARBOPLATIN
     Indication: Ovarian cancer stage III
     Dosage: UNK
     Route: 065
  3. PEGFILGRASTIM [Suspect]
     Active Substance: PEGFILGRASTIM
     Indication: Ovarian cancer stage III
     Dosage: 6 MILLIGRAM
     Route: 065
  4. PEGFILGRASTIM [Suspect]
     Active Substance: PEGFILGRASTIM
     Indication: Prophylaxis
  5. AZITHROMYCIN [Suspect]
     Active Substance: AZITHROMYCIN
     Indication: Mycobacterium avium complex infection
     Dosage: UNK
     Route: 065
  6. RIFABUTIN [Suspect]
     Active Substance: RIFABUTIN
     Indication: Mycobacterium avium complex infection
     Dosage: UNK
     Route: 065
  7. ETHAMBUTOL [Suspect]
     Active Substance: ETHAMBUTOL HYDROCHLORIDE
     Indication: Mycobacterium avium complex infection
     Dosage: UNK
     Route: 065
  8. BEVACIZUMAB [Suspect]
     Active Substance: BEVACIZUMAB
     Indication: Ovarian cancer stage III
     Dosage: 15 MILLIGRAM/KILOGRAM
     Route: 065
  9. IMMUNE GLOBULIN NOS [Suspect]
     Active Substance: IMMUNE GLOBULIN NOS
     Indication: Ovarian cancer stage III
     Dosage: 80 MILLIGRAM, Q3W
     Route: 042
  10. IMMUNE GLOBULIN NOS [Suspect]
     Active Substance: IMMUNE GLOBULIN NOS
     Dosage: 60 GRAM, Q3W
     Route: 042

REACTIONS (21)
  - Mycobacterium avium complex infection [Unknown]
  - Hyperbilirubinaemia [Unknown]
  - Liver function test increased [Unknown]
  - Urinary retention [Unknown]
  - Urinary tract infection [Unknown]
  - Klebsiella infection [Unknown]
  - Urinary incontinence [Unknown]
  - Neuropathy peripheral [Unknown]
  - Headache [Unknown]
  - Dyspnoea exertional [Unknown]
  - Palpitations [Unknown]
  - Anxiety [Unknown]
  - Constipation [Unknown]
  - Diarrhoea [Unknown]
  - Abdominal pain [Unknown]
  - Bone pain [Unknown]
  - Abdominal discomfort [Unknown]
  - Fatigue [Unknown]
  - Nausea [Unknown]
  - Pyrexia [Unknown]
  - Myalgia [Unknown]
